FAERS Safety Report 12800350 (Version 9)
Quarter: 2018Q2

REPORT INFORMATION
  Report Type: Report from Study
  Country: US (occurrence: US)
  Receive Date: 20160930
  Receipt Date: 20180510
  Transmission Date: 20180711
  Serious: Yes (Other)
  Sender: FDA-Public Use
  Company Number: US-SAOL THERAPEUTICS-2016SAO00379

PATIENT
  Age: 57 Year
  Sex: Female
  Weight: 90.7 kg

DRUGS (32)
  1. COMPOUNDED BACLOFEN [Suspect]
     Active Substance: BACLOFEN
     Dosage: 567.9 ?G, \DAY - MAX
     Route: 037
     Dates: start: 20141205
  2. FENTANYL. [Suspect]
     Active Substance: FENTANYL
     Dosage: 292.4 ?G, \DAY
     Route: 037
     Dates: end: 20141205
  3. FENTANYL. [Suspect]
     Active Substance: FENTANYL
     Dosage: 347.9 ?G, \DAY - MAX
     Route: 037
     Dates: start: 20160205, end: 20160401
  4. FENTANYL. [Suspect]
     Active Substance: FENTANYL
     Dosage: 368.8 ?G, \DAY - MAX
     Route: 037
     Dates: start: 20160401
  5. BUPIVACAINE. [Suspect]
     Active Substance: BUPIVACAINE
     Dosage: 0.3895 MG, \DAY
     Route: 037
  6. COMPOUNDED BACLOFEN [Suspect]
     Active Substance: BACLOFEN
     Dosage: 384.9 ?G, \DAY
     Route: 037
     Dates: start: 20151223, end: 20160205
  7. COMPOUNDED BACLOFEN [Suspect]
     Active Substance: BACLOFEN
     Dosage: 483.9 ?G, \DAY - MAX
     Route: 037
     Dates: start: 20151223, end: 20160205
  8. BUPIVACAINE. [Suspect]
     Active Substance: BUPIVACAINE
     Dosage: 1.824 MG, \DAY
     Route: 037
     Dates: start: 20160205
  9. FENTANYL. [Suspect]
     Active Substance: FENTANYL
     Dosage: 55.61 ?G, \DAY
     Route: 037
     Dates: start: 20160908
  10. COMPOUNDED BACLOFEN [Suspect]
     Active Substance: BACLOFEN
     Dosage: 547.7 ?G, \DAY - MAX
     Route: 037
     Dates: end: 20141205
  11. FENTANYL. [Suspect]
     Active Substance: FENTANYL
     Dosage: 307.6 ?G, \DAY
     Route: 037
     Dates: start: 20141205
  12. BUPIVACAINE. [Suspect]
     Active Substance: BUPIVACAINE
     Dosage: 2.051 MG, \DAY
     Route: 037
     Dates: start: 20141205
  13. BUPIVACAINE. [Suspect]
     Active Substance: BUPIVACAINE
     Dosage: 2.839 MG, \DAY - MAX
     Route: 037
     Dates: start: 20141205
  14. FENTANYL. [Suspect]
     Active Substance: FENTANYL
     Dosage: 410.8 ?G, \DAY - MAX
     Route: 037
     Dates: end: 20141205
  15. FENTANYL. [Suspect]
     Active Substance: FENTANYL
     Dosage: 425.9 ?G, \DAY - MAX
     Route: 037
     Dates: start: 20141205
  16. FENTANYL. [Suspect]
     Active Substance: FENTANYL
     Dosage: 363.0 ?G, \DAY - MAX
     Route: 037
     Dates: start: 20151223, end: 20160205
  17. FENTANYL. [Suspect]
     Active Substance: FENTANYL
     Dosage: 290.0 ?G, \DAY
     Route: 037
     Dates: start: 20160401
  18. BUPIVACAINE. [Suspect]
     Active Substance: BUPIVACAINE
     Dosage: 2.738 MG, \DAY - MAX
     Route: 037
     Dates: end: 20141205
  19. BUPIVACAINE. [Suspect]
     Active Substance: BUPIVACAINE
     Dosage: 1.925 MG, \DAY
     Route: 037
     Dates: start: 20151223, end: 20160205
  20. COMPOUNDED BACLOFEN [Suspect]
     Active Substance: BACLOFEN
     Indication: MUSCLE SPASTICITY
     Dosage: 389.9 ?G, \DAY
     Route: 037
     Dates: end: 20141205
  21. FENTANYL. [Suspect]
     Active Substance: FENTANYL
     Dosage: 273.6 ?G, \DAY
     Route: 037
     Dates: start: 20160205, end: 20160401
  22. BUPIVACAINE. [Suspect]
     Active Substance: BUPIVACAINE
     Dosage: 0.349 MG, \DAY
     Route: 037
     Dates: start: 20160908
  23. COMPOUNDED BACLOFEN [Suspect]
     Active Substance: BACLOFEN
     Dosage: 410.2 ?G, \DAY
     Route: 037
     Dates: start: 20141205
  24. COMPOUNDED BACLOFEN [Suspect]
     Active Substance: BACLOFEN
     Dosage: 364.8 ?G, \DAY
     Route: 037
     Dates: start: 20160205
  25. FENTANYL. [Suspect]
     Active Substance: FENTANYL
     Dosage: 288.7 ?G, \DAY
     Route: 037
     Dates: start: 20151223, end: 20160205
  26. BUPIVACAINE. [Suspect]
     Active Substance: BUPIVACAINE
     Dosage: 1.949 MG, \DAY
     Route: 037
     Dates: end: 20141205
  27. BUPIVACAINE. [Suspect]
     Active Substance: BUPIVACAINE
     Dosage: 2.420 MG, \DAY - MAX
     Route: 037
     Dates: start: 20151223, end: 20160205
  28. COMPOUNDED BACLOFEN [Suspect]
     Active Substance: BACLOFEN
     Indication: MUSCLE SPASTICITY
     Dosage: 69.9 ?G, \DAY
     Route: 037
     Dates: start: 20160908
  29. COMPOUNDED BACLOFEN [Suspect]
     Active Substance: BACLOFEN
     Dosage: 77.9 ?G, \DAY
     Route: 037
  30. COMPOUNDED BACLOFEN [Suspect]
     Active Substance: BACLOFEN
     Dosage: 463.9 ?G, \DAY - MAX
     Route: 037
     Dates: start: 20160205
  31. BUPIVACAINE. [Suspect]
     Active Substance: BUPIVACAINE
     Dosage: 2.319 MG, \DAY - MAX
     Route: 037
     Dates: start: 20160205
  32. FENTANYL. [Suspect]
     Active Substance: FENTANYL
     Dosage: 61.93 ?G, \DAY
     Route: 037

REACTIONS (14)
  - Somnolence [Recovered/Resolved]
  - Discomfort [Recovered/Resolved]
  - Pain in extremity [Not Recovered/Not Resolved]
  - Complication associated with device [Recovered/Resolved]
  - Drug withdrawal syndrome [Not Recovered/Not Resolved]
  - Arthralgia [Not Recovered/Not Resolved]
  - Headache [Not Recovered/Not Resolved]
  - Implant site extravasation [Recovered/Resolved]
  - Wound dehiscence [Unknown]
  - Chills [Not Recovered/Not Resolved]
  - Device damage [Recovered/Resolved]
  - Device occlusion [Recovered/Resolved]
  - Implant site pain [Recovered/Resolved]
  - Device infusion issue [Recovered/Resolved]

NARRATIVE: CASE EVENT DATE: 20160519
